FAERS Safety Report 18561528 (Version 1)
Quarter: 2020Q4

REPORT INFORMATION
  Report Type: Other
  Country: CA (occurrence: CA)
  Receive Date: 20201201
  Receipt Date: 20201201
  Transmission Date: 20210114
  Serious: Yes (Other)
  Sender: FDA-Public Use
  Company Number: CA-CELLTRION INC.-2020CA032584

PATIENT

DRUGS (13)
  1. AVAPRO [Concomitant]
     Active Substance: IRBESARTAN
  2. METHOTREXATE. [Concomitant]
     Active Substance: METHOTREXATE
     Dosage: 1 EVERY 1 WEEKS
     Route: 058
  3. OXYBUTYNIN. [Concomitant]
     Active Substance: OXYBUTYNIN CHLORIDE
     Route: 065
  4. LANSOPRAZOLE. [Concomitant]
     Active Substance: LANSOPRAZOLE
  5. CALCIUM [Concomitant]
     Active Substance: CALCIUM
  6. SULFASALAZINE. [Concomitant]
     Active Substance: SULFASALAZINE
  7. HYDROCHLOROTHIAZIDE. [Concomitant]
     Active Substance: HYDROCHLOROTHIAZIDE
  8. IRBESARTAN. [Concomitant]
     Active Substance: IRBESARTAN
  9. ACTEMRA [Suspect]
     Active Substance: TOCILIZUMAB
     Indication: RHEUMATOID ARTHRITIS
     Dosage: 824 MG, 1 EVERY 4 WEEKS
     Route: 042
  10. LYRICA [Concomitant]
     Active Substance: PREGABALIN
     Dosage: 50 MG, 2 EVERY 1 DAYS
     Route: 065
  11. RITUXIMAB (UNKNOWN) [Suspect]
     Active Substance: RITUXIMAB
     Indication: RHEUMATOID ARTHRITIS
     Dosage: 1000 MG
     Route: 042
  12. ACTEMRA [Suspect]
     Active Substance: TOCILIZUMAB
     Indication: RHEUMATOID ARTHRITIS
     Dosage: 800 MG, 1 EVERY 4 WEEKS
     Route: 042
  13. ELAVIL [Concomitant]
     Active Substance: AMITRIPTYLINE HYDROCHLORIDE
     Dosage: 75 MG
     Route: 065

REACTIONS (10)
  - Hypersensitivity [Not Recovered/Not Resolved]
  - Nasopharyngitis [Not Recovered/Not Resolved]
  - Weight increased [Not Recovered/Not Resolved]
  - Ear infection [Not Recovered/Not Resolved]
  - Lower respiratory tract infection [Not Recovered/Not Resolved]
  - Pneumonia [Not Recovered/Not Resolved]
  - Laryngitis [Not Recovered/Not Resolved]
  - Bronchitis [Not Recovered/Not Resolved]
  - Infusion related reaction [Not Recovered/Not Resolved]
  - Pharyngitis [Not Recovered/Not Resolved]
